FAERS Safety Report 10196861 (Version 1)
Quarter: 2014Q2

REPORT INFORMATION
  Report Type: Spontaneous
  Country: US (occurrence: None)
  Receive Date: 20140523
  Receipt Date: 20140523
  Transmission Date: 20141212
  Serious: Yes (Hospitalization)
  Sender: FDA-Public Use
  Company Number: None

PATIENT
  Age: 42 Year
  Sex: Female

DRUGS (5)
  1. DENOSUMAB [Suspect]
     Indication: NEOPLASM MALIGNANT
     Route: 058
     Dates: start: 20140110, end: 20140110
  2. OCTREOTIDE [Concomitant]
  3. OMEGA 3 FATTY ACIDS [Concomitant]
  4. PANCREALIPASE [Concomitant]
  5. PREGABALIN [Concomitant]

REACTIONS (4)
  - Hypocalcaemia [None]
  - Paraesthesia [None]
  - Fatigue [None]
  - Muscular weakness [None]
